FAERS Safety Report 20014121 (Version 1)
Quarter: 2021Q4

REPORT INFORMATION
  Report Type: Spontaneous
  Country: US (occurrence: US)
  Receive Date: 20211029
  Receipt Date: 20211029
  Transmission Date: 20220303
  Serious: Yes (Hospitalization, Other)
  Sender: FDA-Public Use
  Company Number: US-EMMAUS MEDICAL, INC.-EMM202110-000187

PATIENT
  Sex: Male
  Weight: 140.61 kg

DRUGS (1)
  1. ENDARI [Suspect]
     Active Substance: GLUTAMINE
     Indication: Sickle cell anaemia
     Route: 048
     Dates: start: 20180810

REACTIONS (3)
  - Pneumonia [Unknown]
  - Pyrexia [Unknown]
  - COVID-19 [Recovered/Resolved]
